FAERS Safety Report 4402373-2 (Version None)
Quarter: 2004Q3

REPORT INFORMATION
  Report Type: 
  Country: None (occurrence: None)
  Receive Date: 20040715
  Receipt Date: 20040707
  Transmission Date: 20050211
  Serious: Yes (Life-Threatening, Other)
  Sender: FDA-Public Use
  Company Number: 2004US000708

PATIENT
  Age: 53 Year
  Sex: Male
  Weight: 81.6 kg

DRUGS (2)
  1. ADENOSCAN [Suspect]
     Indication: SCAN MYOCARDIAL PERFUSION
     Dosage: 45.70 MG, TOTAL DOSE, INTRAVENOUS
     Route: 042
     Dates: start: 20040618, end: 20040618
  2. CARDIOLITE [Concomitant]

REACTIONS (11)
  - BACK PAIN [None]
  - BACTERIA BLOOD IDENTIFIED [None]
  - BACTERIAL SEPSIS [None]
  - DIALYSIS [None]
  - LEUKOCYTOSIS [None]
  - LOSS OF CONSCIOUSNESS [None]
  - NECK PAIN [None]
  - NEUTROPENIA [None]
  - RENAL FAILURE ACUTE [None]
  - RESPIRATORY FAILURE [None]
  - SEPTIC SHOCK [None]
